FAERS Safety Report 8091030-X (Version None)
Quarter: 2012Q1

REPORT INFORMATION
  Report Type: 
  Country: None (occurrence: None)
  Receive Date: 20120128
  Receipt Date: 20110803
  Transmission Date: 20120608
  Serious: No
  Sender: FDA-Public Use
  Company Number: US-ABBOTT-11P-163-0843057-00

PATIENT
  Sex: Female
  Weight: 91.708 kg

DRUGS (11)
  1. CALCIUM [Concomitant]
     Indication: MINERAL SUPPLEMENTATION
  2. VITAMIN D [Concomitant]
     Indication: VITAMIN SUPPLEMENTATION
     Dosage: 1 GM DAILY
  3. SIMVASTATIN [Concomitant]
     Indication: BLOOD CHOLESTEROL INCREASED
  4. PREDNISONE TAB [Suspect]
     Indication: PSORIATIC ARTHROPATHY
  5. METHOTREXATE [Concomitant]
     Indication: PSORIATIC ARTHROPATHY
  6. FOSAMAX [Concomitant]
     Indication: ARTHRITIS
  7. CYMBALTA [Concomitant]
     Indication: DEPRESSION
  8. BYSTOLIC [Concomitant]
     Indication: HYPERTENSION
  9. CYMBALTA [Concomitant]
     Indication: PAIN
  10. FOLIC ACID [Concomitant]
     Indication: VITAMIN SUPPLEMENTATION
  11. HUMIRA [Suspect]
     Indication: PSORIATIC ARTHROPATHY
     Dates: start: 20110706

REACTIONS (2)
  - CONTUSION [None]
  - MUSCLE SPASMS [None]
